FAERS Safety Report 4357286-1 (Version None)
Quarter: 2004Q2

REPORT INFORMATION
  Report Type: 
  Country: None (occurrence: None)
  Receive Date: 20040507
  Receipt Date: 20040415
  Transmission Date: 20050107
  Serious: Yes (Other)
  Sender: FDA-Public Use
  Company Number: US_0404102382

PATIENT
  Age: 52 Year
  Sex: Male
  Weight: 100 kg

DRUGS (3)
  1. HUMALOG [Suspect]
     Indication: DIABETES MELLITUS
     Dates: start: 20000101
  2. INSULIN [Suspect]
     Indication: DIABETES MELLITUS
     Dates: start: 19720101
  3. INSULIN GLARGINE [Concomitant]

REACTIONS (3)
  - HYPERTENSION [None]
  - LEG AMPUTATION [None]
  - LOSS OF EMPLOYMENT [None]
